FAERS Safety Report 5214661-0 (Version None)
Quarter: 2007Q1

REPORT INFORMATION
  Report Type: 
  Country: None (occurrence: None)
  Receive Date: 20070122
  Receipt Date: 20070108
  Transmission Date: 20070707
  Serious: Yes (Hospitalization)
  Sender: FDA-Public Use
  Company Number: GB-ELI_LILLY_AND_COMPANY-GB200701001093

PATIENT
  Age: 52 Year
  Sex: Male

DRUGS (6)
  1. FLUOXETINE [Suspect]
     Indication: DEPRESSION
     Dosage: UNK, UNKNOWN
     Route: 048
  2. ASPIRIN [Concomitant]
     Indication: MYOCARDIAL ISCHAEMIA
     Dosage: 75 MG, UNKNOWN
     Route: 048
  3. CO-CODAMOL [Concomitant]
  4. ISOSORBIDE MONONITRATE [Concomitant]
  5. SALBUTAMOL [Concomitant]
  6. SIMVASTATIN [Concomitant]

REACTIONS (2)
  - DUODENAL ULCER [None]
  - GASTRITIS [None]
